FAERS Safety Report 9207405 (Version 1)
Quarter: 2013Q2

REPORT INFORMATION
  Report Type: Report from Study
  Country: US (occurrence: US)
  Receive Date: 20130403
  Receipt Date: 20130403
  Transmission Date: 20140414
  Serious: Yes (Hospitalization)
  Sender: FDA-Public Use
  Company Number: US-ROCHE-1082319

PATIENT
  Age: 52 Year
  Sex: Female
  Weight: 86.26 kg

DRUGS (2)
  1. XELODA [Suspect]
     Indication: BREAST CANCER METASTATIC
     Route: 048
     Dates: start: 20120607, end: 201212
  2. IMODIUM [Concomitant]

REACTIONS (10)
  - Pericardial excision [Recovered/Resolved]
  - Cardiac disorder [Recovered/Resolved]
  - Pneumonitis [Unknown]
  - Diarrhoea [Recovered/Resolved]
  - Hyperaesthesia [Not Recovered/Not Resolved]
  - Oral pain [Not Recovered/Not Resolved]
  - Hyperaesthesia [Not Recovered/Not Resolved]
  - Paraesthesia [Not Recovered/Not Resolved]
  - Paraesthesia [Not Recovered/Not Resolved]
  - Disease progression [Unknown]
